FAERS Safety Report 13369886 (Version 1)
Quarter: 2017Q1

REPORT INFORMATION
  Report Type: Spontaneous
  Country: US (occurrence: US)
  Receive Date: 20170324
  Receipt Date: 20170324
  Transmission Date: 20170429
  Serious: No
  Sender: FDA-Public Use
  Company Number: US-ROCHE-1292739

PATIENT
  Age: 53 Year
  Sex: Female

DRUGS (2)
  1. PREDNISONE. [Concomitant]
     Active Substance: PREDNISONE
  2. XOLAIR [Suspect]
     Active Substance: OMALIZUMAB
     Indication: ASTHMA
     Route: 058
     Dates: start: 20130904

REACTIONS (10)
  - Fluid retention [Unknown]
  - Abdominal distension [Unknown]
  - Weight increased [Not Recovered/Not Resolved]
  - Hypophagia [Unknown]
  - Hunger [Unknown]
  - Dry mouth [Unknown]
  - Breast disorder [Unknown]
  - Swelling [Unknown]
  - Fluid retention [Not Recovered/Not Resolved]
  - Quality of life decreased [Not Recovered/Not Resolved]

NARRATIVE: CASE EVENT DATE: 20130904
